FAERS Safety Report 25483450 (Version 2)
Quarter: 2025Q3

REPORT INFORMATION
  Report Type: Spontaneous
  Country: US (occurrence: US)
  Receive Date: 20250626
  Receipt Date: 20250714
  Transmission Date: 20251020
  Serious: Yes (Other)
  Sender: TRAVERE THERAPEUTICS
  Company Number: US-TRAVERE-2025TVT00967

PATIENT
  Age: 69 Year
  Sex: Female

DRUGS (2)
  1. FILSPARI [Suspect]
     Active Substance: SPARSENTAN
     Indication: IgA nephropathy
     Route: 048
     Dates: start: 202506
  2. FENTANYL [Concomitant]
     Active Substance: FENTANYL

REACTIONS (2)
  - Blood pressure decreased [None]
  - Chest pain [Unknown]

NARRATIVE: CASE EVENT DATE: 20250601
